FAERS Safety Report 7018607-4 (Version None)
Quarter: 2010Q3

REPORT INFORMATION
  Report Type: 
  Country: None (occurrence: None)
  Receive Date: 20100928
  Receipt Date: 20100921
  Transmission Date: 20110219
  Serious: Yes (Other)
  Sender: FDA-Public Use
  Company Number: US-AMGEN-KDL440081

PATIENT
  Sex: Female

DRUGS (3)
  1. ENBREL [Suspect]
     Indication: RHEUMATOID ARTHRITIS
     Route: 058
     Dates: start: 20070920, end: 20090101
  2. HUMIRA [Concomitant]
  3. UNSPECIFIED MEDICATION [Concomitant]

REACTIONS (4)
  - ALOPECIA [None]
  - DEPRESSION [None]
  - DRUG INEFFECTIVE [None]
  - JOINT STIFFNESS [None]
